FAERS Safety Report 7251895-8 (Version None)
Quarter: 2011Q1

REPORT INFORMATION
  Report Type: 
  Country: None (occurrence: None)
  Receive Date: 20110128
  Receipt Date: 20100106
  Transmission Date: 20110831
  Serious: No
  Sender: FDA-Public Use
  Company Number: US-ABBOTT-10P-163-0618477-00

PATIENT
  Sex: Female
  Weight: 101.24 kg

DRUGS (6)
  1. HYDROCHLOROTHIAZIDE [Concomitant]
     Indication: HYPERTENSION
  2. AVAPRO [Concomitant]
     Indication: HYPERTENSION
  3. HUMIRA [Suspect]
     Indication: PSORIATIC ARTHROPATHY
     Dosage: SOMETIMES WOULD TAKE A LATE DOSE, ABOUT 1 TO 2 DAYS AFTER SUPPOSE TO.
     Route: 058
  4. LEVOTHYROXINE SODIUM [Concomitant]
     Indication: HYPOTHYROIDISM
  5. METOPROLOL [Concomitant]
     Indication: HYPERTENSION
  6. UNKNOWN VITAMINS [Concomitant]
     Indication: PRODUCT USED FOR UNKNOWN INDICATION

REACTIONS (1)
  - INJECTION SITE PAIN [None]
